FAERS Safety Report 16257383 (Version 2)
Quarter: 2022Q3

REPORT INFORMATION
  Report Type: Spontaneous
  Country: JP (occurrence: None)
  Receive Date: 20190430
  Receipt Date: 20220801
  Transmission Date: 20221026
  Serious: Yes (Death, Disabling, Other)
  Sender: FDA-Public Use
  Company Number: 2018SF33202

PATIENT
  Age: 70 Year
  Sex: Male
  Weight: 73 kg

DRUGS (7)
  1. IMFINZI [Suspect]
     Active Substance: DURVALUMAB
     Indication: Non-small cell lung cancer
     Route: 041
     Dates: start: 20180906, end: 20180920
  2. IMFINZI [Suspect]
     Active Substance: DURVALUMAB
     Indication: Non-small cell lung cancer
     Route: 041
     Dates: start: 20181108, end: 20181121
  3. CARBOPLATIN [Suspect]
     Active Substance: CARBOPLATIN
     Indication: Non-small cell lung cancer
     Dosage: DOSE UNKNOWN
     Route: 065
     Dates: start: 20180621, end: 20180809
  4. CARBOPLATIN [Suspect]
     Active Substance: CARBOPLATIN
     Indication: Non-small cell lung cancer
     Dosage: AUC5
     Route: 065
     Dates: start: 20180830, end: 20180830
  5. PACLITAXEL [Suspect]
     Active Substance: PACLITAXEL
     Indication: Non-small cell lung cancer
     Dosage: 40 MG/M2
     Route: 065
     Dates: start: 20180621, end: 20180809
  6. PACLITAXEL [Suspect]
     Active Substance: PACLITAXEL
     Indication: Non-small cell lung cancer
     Dosage: 200 MG/M2
     Route: 065
     Dates: start: 20180830, end: 20180830
  7. CYMBALTA [Concomitant]
     Active Substance: DULOXETINE HYDROCHLORIDE
     Indication: Hypoaesthesia
     Dosage: DOSE UNKNOWN
     Route: 065
     Dates: start: 20180831

REACTIONS (4)
  - Pneumonia bacterial [Fatal]
  - Radiation pneumonitis [Recovered/Resolved with Sequelae]
  - Interstitial lung disease [Recovered/Resolved with Sequelae]
  - Neutropenia [Recovered/Resolved]

NARRATIVE: CASE EVENT DATE: 20180913
